FAERS Safety Report 6725847-8 (Version None)
Quarter: 2010Q2

REPORT INFORMATION
  Report Type: 
  Country: None (occurrence: None)
  Receive Date: 20100514
  Receipt Date: 20100504
  Transmission Date: 20101027
  Serious: Yes (Other)
  Sender: FDA-Public Use
  Company Number: PHHY2010US29207

PATIENT
  Sex: Female

DRUGS (3)
  1. RECLAST [Suspect]
     Route: 042
  2. FOSAMAX [Suspect]
  3. MIACALCIN [Suspect]

REACTIONS (4)
  - BODY HEIGHT DECREASED [None]
  - BODY TEMPERATURE INCREASED [None]
  - BONE PAIN [None]
  - MALAISE [None]
